FAERS Safety Report 5972887-2 (Version None)
Quarter: 2008Q4

REPORT INFORMATION
  Report Type: 
  Country: None (occurrence: None)
  Receive Date: 20081201
  Receipt Date: 20081118
  Transmission Date: 20090506
  Serious: Yes (Other)
  Sender: FDA-Public Use
  Company Number: PHHY2008BE29098

PATIENT
  Age: 78 Year
  Sex: Female

DRUGS (1)
  1. ACLASTA [Suspect]
     Dosage: 5 MG AMPOULE

REACTIONS (4)
  - BLINDNESS [None]
  - DYSGEUSIA [None]
  - INJECTION SITE PAIN [None]
  - NECK PAIN [None]
